FAERS Safety Report 8538525-X (Version None)
Quarter: 2012Q3

REPORT INFORMATION
  Report Type: 
  Country: None (occurrence: None)
  Receive Date: 20120726
  Receipt Date: 20120712
  Transmission Date: 20120928
  Serious: No
  Sender: FDA-Public Use
  Company Number: US-JNJFOC-20120707795

PATIENT
  Sex: Female
  Weight: 83.01 kg

DRUGS (9)
  1. LAMICTAL [Concomitant]
     Indication: ANXIETY
     Route: 048
  2. FENTANYL-100 [Suspect]
     Dosage: 4-5 DAYS
     Route: 062
     Dates: start: 20120401
  3. CLONAZEPAM [Concomitant]
     Indication: ANXIETY
     Route: 048
  4. LORAZEPAM [Concomitant]
     Indication: ANXIETY
     Route: 048
  5. LAMICTAL [Concomitant]
     Dosage: MORNING
     Route: 048
  6. PERCOCET [Concomitant]
     Indication: PAIN
     Dosage: 5/325 MG AS NECESSARY
     Route: 048
  7. FENTANYL-100 [Suspect]
     Indication: PAIN
     Route: 062
     Dates: end: 20120401
  8. BUSPAR [Concomitant]
     Indication: ANXIETY
     Route: 048
  9. CYMBALTA [Concomitant]
     Indication: DEPRESSION
     Route: 065

REACTIONS (4)
  - WRONG TECHNIQUE IN DRUG USAGE PROCESS [None]
  - PRODUCT PACKAGING QUANTITY ISSUE [None]
  - DRUG PRESCRIBING ERROR [None]
  - ABNORMAL LOSS OF WEIGHT [None]
